FAERS Safety Report 7466977-5 (Version None)
Quarter: 2011Q2

REPORT INFORMATION
  Report Type: 
  Country: None (occurrence: None)
  Receive Date: 20110509
  Receipt Date: 20011207
  Transmission Date: 20111010
  Serious: Yes (Hospitalization, Other)
  Sender: FDA-Public Use
  Company Number: US-BAYER-201022369NA

PATIENT
  Age: 43 Year
  Sex: Female
  Weight: 72.562 kg

DRUGS (10)
  1. SINGULAIR [Concomitant]
     Indication: MULTIPLE ALLERGIES
  2. ALTACE [Concomitant]
     Indication: HYPERTENSION
     Dosage: UNK
     Dates: start: 20040101, end: 20080101
  3. ADVAIR DISKUS 100/50 [Concomitant]
     Indication: ASTHMA
  4. XOPENEX [Concomitant]
     Indication: ASTHMA
  5. PROAIR HFA [Concomitant]
     Indication: ASTHMA
  6. AVANDIA [Concomitant]
     Indication: DIABETES MELLITUS
     Dosage: UNK
     Dates: start: 20040101, end: 20080101
  7. MOTRIN [Concomitant]
     Indication: PAIN
     Dosage: UNK
     Dates: start: 20060801
  8. YAZ [Suspect]
     Indication: PRODUCT USED FOR UNKNOWN INDICATION
     Route: 048
     Dates: start: 20060101, end: 20080501
  9. SINGULAIR [Concomitant]
     Indication: ASTHMA
     Dosage: UNK
     Dates: start: 20040101
  10. PROTONIX [Concomitant]
     Indication: EROSIVE OESOPHAGITIS
     Dosage: UNK
     Dates: start: 20070201, end: 20091201

REACTIONS (1)
  - CEREBROVASCULAR ACCIDENT [None]
